FAERS Safety Report 9833092 (Version 1)
Quarter: 2014Q1

REPORT INFORMATION
  Report Type: Spontaneous
  Country: HU (occurrence: HU)
  Receive Date: 20140121
  Receipt Date: 20140121
  Transmission Date: 20141002
  Serious: Yes (Hospitalization)
  Sender: FDA-Public Use
  Company Number: US-ASTRAZENECA-2014SE04071

PATIENT
  Age: 15 Week
  Sex: Male

DRUGS (1)
  1. SYNAGIS [Suspect]
     Indication: PRODUCT USED FOR UNKNOWN INDICATION
     Dosage: SYNAGIS DOSE WAS GIVEN MONTHLY BASED ON BODY WEIGHT
     Route: 030
     Dates: start: 20131120, end: 20131216

REACTIONS (2)
  - Cough [Unknown]
  - Dyspnoea [Unknown]
